FAERS Safety Report 15753116 (Version 1)
Quarter: 2018Q4

REPORT INFORMATION
  Report Type: Spontaneous
  Country: JP (occurrence: JP)
  Receive Date: 20181222
  Receipt Date: 20181222
  Transmission Date: 20190205
  Serious: Yes (Hospitalization, Other)
  Sender: FDA-Public Use
  Company Number: JP-AMGEN-JPNSP2018182606

PATIENT
  Age: 63 Year
  Sex: Male
  Weight: 64 kg

DRUGS (13)
  1. RANMARK [Suspect]
     Active Substance: DENOSUMAB
     Indication: METASTASES TO BONE
     Dosage: 120 MG (8 TIMES)
     Route: 058
     Dates: start: 20170713
  2. METHYCOBAL [Concomitant]
     Active Substance: METHYLCOBALAMIN
     Dosage: 250 MUG, TID AFTER BREAKFAST, LUNCH AND DINNER
     Route: 065
     Dates: start: 20180823
  3. HACHIAZULE [Concomitant]
     Dosage: UNK UNK, QID
     Route: 065
     Dates: start: 20180823
  4. MAGMITT [Concomitant]
     Active Substance: MAGNESIUM OXIDE
     Dosage: 500 MG, TID AFTER BREAKFAST, LUNCH AND DINNER WHEN A FLIGHT IS LOOSE, IT^S ADJUSTED
     Route: 065
     Dates: start: 20180823
  5. LYRICA [Concomitant]
     Active Substance: PREGABALIN
     Dosage: 75 MG, QD BEFORE BEDTIME
     Route: 065
     Dates: start: 20180823
  6. CORTRIL [Concomitant]
     Active Substance: HYDROCORTISONE
     Dosage: 20 MG, AS NEEDED TIME FOR PYREXIA OR PAIN
     Route: 065
     Dates: start: 20180823
  7. NEUROVITAN [Concomitant]
     Active Substance: VITAMINS
     Dosage: 1 DF, TID AFTER BREAKFAST, LUNCH AND DINNER
     Route: 065
     Dates: start: 20180823
  8. KEYTRUDA [Suspect]
     Active Substance: PEMBROLIZUMAB
     Indication: URETERIC CANCER RECURRENT
     Dosage: 200 MG (5 TIMES)
     Route: 042
     Dates: start: 20180510, end: 20180823
  9. CORTRIL [Concomitant]
     Active Substance: HYDROCORTISONE
     Dosage: AFTER BREAKFAST10MG AFTER DINNER5MG, BID
     Route: 065
     Dates: start: 20180823
  10. TAKECAB [Concomitant]
     Active Substance: VONOPRAZAN FUMURATE
     Dosage: 10 MG, QD BEFORE BEDTIME
     Route: 065
     Dates: start: 20180823
  11. FEBURIC [Concomitant]
     Active Substance: FEBUXOSTAT
     Dosage: 5 MG, QD AFTER BREAKFAST
     Route: 065
     Dates: start: 20180823
  12. DENOTAS [Concomitant]
     Active Substance: CALCIUM CARBONATE\CHOLECALCIFEROL\MAGNESIUM CARBONATE
     Dosage: 2 DF, QD AFTER BREAKFAST
     Route: 065
     Dates: start: 20180823
  13. RHYTHMY [Concomitant]
     Active Substance: RILMAZAFONE HYDROCHLORIDE
     Dosage: 1 MG, QD BEFORE BEDTIME
     Route: 065
     Dates: start: 20180823

REACTIONS (2)
  - Cerebral haemorrhage [Recovering/Resolving]
  - Hemiplegia [Recovering/Resolving]

NARRATIVE: CASE EVENT DATE: 20180906
